FAERS Safety Report 4630285-8 (Version None)
Quarter: 2005Q2

REPORT INFORMATION
  Report Type: 
  Country: None (occurrence: None)
  Receive Date: 20050406
  Receipt Date: 20050310
  Transmission Date: 20051028
  Serious: No
  Sender: FDA-Public Use
  Company Number: 10497

PATIENT
  Age: 70 Year
  Sex: Female

DRUGS (5)
  1. METHOTREXATE [Suspect]
     Indication: BREAST CANCER METASTATIC
     Dosage: 40 MG PER_CYCLE IV
     Route: 042
     Dates: start: 20030402, end: 20030423
  2. FLUOROURACIL [Suspect]
     Indication: BREAST CANCER METASTATIC
     Dosage: 500 MG PER_CYCLE
     Dates: start: 20030402, end: 20030423
  3. CYCLOPHOSPHAMIDE [Suspect]
     Indication: BREAST CANCER METASTATIC
     Dosage: 500 MG PER_CYCLE
     Dates: start: 20030402, end: 20030423
  4. ALENDRONATE SODIUM [Concomitant]
  5. OK-423 5KE [Concomitant]

REACTIONS (5)
  - ANAEMIA [None]
  - DISEASE PROGRESSION [None]
  - DRUG INEFFECTIVE [None]
  - METASTASES TO BONE [None]
  - METASTASES TO SPINE [None]
